FAERS Safety Report 12924743 (Version 1)
Quarter: 2016Q4

REPORT INFORMATION
  Report Type: Spontaneous
  Country: US (occurrence: US)
  Receive Date: 20161108
  Receipt Date: 20161108
  Transmission Date: 20170207
  Serious: Yes (Hospitalization)
  Sender: FDA-Public Use
  Company Number: None

PATIENT
  Age: 72 Year
  Weight: 100.8 kg

DRUGS (1)
  1. CYTARABINE. [Suspect]
     Active Substance: CYTARABINE
     Indication: ACUTE MYELOID LEUKAEMIA
     Dosage: ?          OTHER FREQUENCY:CONTINUOUS X 7 DAY;?
     Route: 041
     Dates: start: 20160115, end: 20160119

REACTIONS (7)
  - Haemoptysis [None]
  - Lung consolidation [None]
  - Pneumocystis test positive [None]
  - Pulmonary oedema [None]
  - Acute respiratory distress syndrome [None]
  - Viral infection [None]
  - Pulmonary haemorrhage [None]

NARRATIVE: CASE EVENT DATE: 20160112
